FAERS Safety Report 11050080 (Version 2)
Quarter: 2015Q2

REPORT INFORMATION
  Report Type: Spontaneous
  Country: FR (occurrence: FR)
  Receive Date: 20150420
  Receipt Date: 20150504
  Transmission Date: 20150821
  Serious: Yes (Other)
  Sender: FDA-Public Use
  Company Number: PHHY2015FR045432

PATIENT
  Age: 11 Year
  Sex: Male

DRUGS (2)
  1. METHYLPHENIDATE HYDROCHLORIDE. [Suspect]
     Active Substance: METHYLPHENIDATE HYDROCHLORIDE
     Indication: ATTENTION DEFICIT/HYPERACTIVITY DISORDER
     Dosage: 30 MG, QD
     Route: 065
  2. METHYLPHENIDATE HYDROCHLORIDE. [Suspect]
     Active Substance: METHYLPHENIDATE HYDROCHLORIDE
     Dosage: 20 UNK, UNK
     Route: 065

REACTIONS (7)
  - Body dysmorphic disorder [Unknown]
  - Body mass index increased [Unknown]
  - Self esteem decreased [Unknown]
  - Eating disorder [Unknown]
  - Weight increased [Unknown]
  - Rebound effect [Unknown]
  - Attention deficit/hyperactivity disorder [Unknown]
